FAERS Safety Report 21559959 (Version 2)
Quarter: 2022Q4

REPORT INFORMATION
  Report Type: Report from Study
  Country: US (occurrence: US)
  Receive Date: 20221107
  Receipt Date: 20221110
  Transmission Date: 20230113
  Serious: Yes (Hospitalization)
  Sender: FDA-Public Use
  Company Number: US-BAUSCH-BL-2022-024854

PATIENT
  Age: 65 Year
  Sex: Female

DRUGS (1)
  1. XIFAXAN [Suspect]
     Active Substance: RIFAXIMIN
     Indication: Hepatic encephalopathy
     Dosage: STARTED COUPLE OF MONTHS
     Route: 048
     Dates: start: 2022

REACTIONS (2)
  - Hepatic cirrhosis [Not Recovered/Not Resolved]
  - Pneumonia [Not Recovered/Not Resolved]
